FAERS Safety Report 15083230 (Version 1)
Quarter: 2018Q2

REPORT INFORMATION
  Report Type: Spontaneous
  Country: US (occurrence: US)
  Receive Date: 20180607
  Receipt Date: 20180607
  Transmission Date: 20180711
  Serious: Yes (Hospitalization)
  Sender: FDA-Public Use
  Company Number: None

PATIENT
  Age: 65 Year
  Sex: Female

DRUGS (15)
  1. LISINOPRIL. [Concomitant]
     Active Substance: LISINOPRIL
  2. AMOX/K CLAV [Concomitant]
     Active Substance: AMOXICILLIN\CLAVULANATE POTASSIUM
  3. TACROLIMUS 1MG CAP [Suspect]
     Active Substance: TACROLIMUS
     Indication: HEART TRANSPLANT
     Dosage: 3 MG (2 MG QAM 1 MG QPM) QD PO
     Route: 048
     Dates: start: 201602
  4. AMLODIPINE [Concomitant]
     Active Substance: AMLODIPINE BESYLATE
  5. MAGNESIUM OX [Concomitant]
  6. TACROLIMUS 0.5MG CAP [Suspect]
     Active Substance: TACROLIMUS
     Indication: HEART TRANSPLANT
     Dosage: 0.5 MG QPM
     Dates: start: 201602
  7. MYCOPHENOLIC 360MG DR TAB [Suspect]
     Active Substance: MYCOPHENOLIC ACID
     Indication: HEART TRANSPLANT
     Route: 048
     Dates: start: 201602
  8. CLOPIDOGREL [Concomitant]
     Active Substance: CLOPIDOGREL BISULFATE
  9. MAG OXIDE [Concomitant]
     Active Substance: MAGNESIUM OXIDE
  10. SODIUM BICAR [Concomitant]
  11. CALCITRIOL. [Concomitant]
     Active Substance: CALCITRIOL
  12. ATORVASTATIN [Concomitant]
     Active Substance: ATORVASTATIN
  13. OMEPRAZOLE. [Concomitant]
     Active Substance: OMEPRAZOLE
  14. FERROUS SULF [Concomitant]
     Active Substance: FERROUS SULFATE
  15. PREDNISONE. [Concomitant]
     Active Substance: PREDNISONE

REACTIONS (1)
  - Pneumonia [None]

NARRATIVE: CASE EVENT DATE: 201805
